FAERS Safety Report 15497824 (Version 2)
Quarter: 2018Q4

REPORT INFORMATION
  Report Type: Report from Study
  Country: US (occurrence: US)
  Receive Date: 20181015
  Receipt Date: 20181024
  Transmission Date: 20190205
  Serious: Yes (Other)
  Sender: FDA-Public Use
  Company Number: US-UCBSA-2018044941

PATIENT
  Age: 46 Year
  Sex: Female

DRUGS (2)
  1. LACOSAMIDE. [Suspect]
     Active Substance: LACOSAMIDE
     Indication: SEIZURE
     Dosage: UNK
     Route: 048
  2. LACOSAMIDE. [Suspect]
     Active Substance: LACOSAMIDE
     Dosage: 200 MG, 3X/DAY (TID)
     Route: 048
     Dates: start: 20181003

REACTIONS (3)
  - Prescribed overdose [Unknown]
  - Off label use [Unknown]
  - Abdominal hernia [Recovering/Resolving]

NARRATIVE: CASE EVENT DATE: 2017
